FAERS Safety Report 7248392-2 (Version None)
Quarter: 2011Q1

REPORT INFORMATION
  Report Type: 
  Country: None (occurrence: None)
  Receive Date: 20110127
  Receipt Date: 20110114
  Transmission Date: 20110831
  Serious: No
  Sender: FDA-Public Use
  Company Number: US-ELI_LILLY_AND_COMPANY-US201101004206

PATIENT
  Sex: Male

DRUGS (2)
  1. CIALIS [Suspect]
     Indication: BENIGN PROSTATIC HYPERPLASIA
     Dosage: 2.5 MG, DAILY (1/D)
     Dates: start: 20091101, end: 20100201
  2. CIALIS [Suspect]
     Dosage: 2.5 MG, DAILY (1/D)
     Dates: start: 20101001

REACTIONS (3)
  - VISUAL IMPAIRMENT [None]
  - PHOTOPHOBIA [None]
  - VISUAL ACUITY REDUCED [None]
